FAERS Safety Report 6461579-1 (Version None)
Quarter: 2009Q4

REPORT INFORMATION
  Report Type: 
  Country: None (occurrence: None)
  Receive Date: 20091118
  Receipt Date: 20091104
  Transmission Date: 20100525
  Serious: Yes (Hospitalization)
  Sender: FDA-Public Use
  Company Number: GAM-164-09-US

PATIENT
  Age: 40 Year
  Sex: Male

DRUGS (1)
  1. OCTAGAM [Suspect]
     Indication: AUTONOMIC NERVOUS SYSTEM IMBALANCE
     Dosage: 25 GM DAILY FOR 5 DAYS
     Dates: start: 20090706, end: 20090717

REACTIONS (10)
  - ANXIETY [None]
  - CONDITION AGGRAVATED [None]
  - DRUG EFFECT DECREASED [None]
  - DYSPNOEA [None]
  - MALAISE [None]
  - MYALGIA [None]
  - PYREXIA [None]
  - SELF-MEDICATION [None]
  - TACHYCARDIA [None]
  - WHITE BLOOD CELL COUNT INCREASED [None]
